FAERS Safety Report 12093426 (Version 4)
Quarter: 2016Q1

REPORT INFORMATION
  Report Type: Spontaneous
  Country: US (occurrence: US)
  Receive Date: 20160219
  Receipt Date: 20160223
  Transmission Date: 20160526
  Serious: No
  Sender: FDA-Public Use
  Company Number: PHEH2016US003746

PATIENT
  Age: 58 Year
  Sex: Female

DRUGS (13)
  1. ZOFRAN [Suspect]
     Active Substance: ONDANSETRON HYDROCHLORIDE
     Indication: PRODUCT USED FOR UNKNOWN INDICATION
     Route: 030
  2. SEROQUEL [Suspect]
     Active Substance: QUETIAPINE FUMARATE
     Dosage: 1 DF, QD
     Route: 048
     Dates: start: 20160124, end: 20160124
  3. SOMA [Suspect]
     Active Substance: CARISOPRODOL
     Indication: BACK PAIN
  4. ATIVAN [Suspect]
     Active Substance: LORAZEPAM
     Dosage: 2 UNK, UNK
     Route: 030
  5. DEMEROL [Suspect]
     Active Substance: MEPERIDINE HYDROCHLORIDE
     Indication: PRODUCT USED FOR UNKNOWN INDICATION
     Route: 030
  6. HALDOL [Suspect]
     Active Substance: HALOPERIDOL
     Indication: PRODUCT USED FOR UNKNOWN INDICATION
     Route: 030
  7. SOMA [Suspect]
     Active Substance: CARISOPRODOL
     Indication: HYPOTONIA
     Dosage: 350 MG BID BY CUTTING THE TABLETS TO FOURTHS
     Route: 048
     Dates: start: 20160108
  8. BENADRYL                           /00647601/ [Suspect]
     Active Substance: CAMPHOR\DIPHENHYDRAMINE\ZINC OXIDE
     Indication: PRODUCT USED FOR UNKNOWN INDICATION
     Route: 030
  9. ALPRAZOLAM. [Suspect]
     Active Substance: ALPRAZOLAM
     Indication: PRODUCT USED FOR UNKNOWN INDICATION
     Route: 065
  10. ATIVAN [Suspect]
     Active Substance: LORAZEPAM
     Indication: PRODUCT USED FOR UNKNOWN INDICATION
     Dosage: 2 MG, UNK
     Route: 030
  11. OXYCODONE [Concomitant]
     Active Substance: OXYCODONE
     Indication: PAIN
     Dosage: 10 MG, BID
     Route: 048
     Dates: start: 20160113
  12. ABILIFY [Suspect]
     Active Substance: ARIPIPRAZOLE
     Indication: PRODUCT USED FOR UNKNOWN INDICATION
     Dosage: 1/2 OF A 20 MG TABLET TWICE A DAY
     Route: 048
     Dates: start: 20160130, end: 20160130
  13. SEROQUEL [Suspect]
     Active Substance: QUETIAPINE FUMARATE
     Indication: MENTAL DISORDER
     Dosage: 2 DF, BID
     Route: 048
     Dates: start: 20160123

REACTIONS (7)
  - Dysphonia [Recovered/Resolved]
  - Tremor [Recovered/Resolved]
  - Skin ulcer [Unknown]
  - Feeling abnormal [Recovered/Resolved]
  - Abasia [Recovered/Resolved]
  - Rhinorrhoea [Recovered/Resolved]
  - Weight decreased [Unknown]

NARRATIVE: CASE EVENT DATE: 20160204
